FAERS Safety Report 12930179 (Version 1)
Quarter: 2016Q4

REPORT INFORMATION
  Report Type: Spontaneous
  Country: US (occurrence: US)
  Receive Date: 20161111
  Receipt Date: 20161111
  Transmission Date: 20170207
  Serious: Yes (Other)
  Sender: FDA-Public Use
  Company Number: None

PATIENT
  Age: 66 Year
  Sex: Female
  Weight: 115.2 kg

DRUGS (16)
  1. FERROUS SULFATE. [Concomitant]
     Active Substance: FERROUS SULFATE
  2. NICORETTE [Concomitant]
     Active Substance: NICOTINE
  3. FLONASE [Concomitant]
     Active Substance: FLUTICASONE PROPIONATE
  4. TRAMADOL. [Concomitant]
     Active Substance: TRAMADOL
  5. CELEBREX (GENERIC) [Concomitant]
  6. ARIPIPRAZOLE TABLETS [Suspect]
     Active Substance: ARIPIPRAZOLE
     Indication: BIPOLAR DISORDER
     Dosage: ?          QUANTITY:0.5 TABLET(S);?
     Route: 048
     Dates: start: 20160929, end: 20161111
  7. ATENELOL HCTZ [Concomitant]
  8. LEVOTHORYXIDE KCL [Concomitant]
  9. FISH OIL [Concomitant]
     Active Substance: FISH OIL
  10. DEPAKOTE ER [Concomitant]
     Active Substance: DIVALPROEX SODIUM
  11. COGENTIN [Concomitant]
     Active Substance: BENZTROPINE MESYLATE
  12. ALLOPURINOL. [Concomitant]
     Active Substance: ALLOPURINOL
  13. CALCIUM WITH D3 [Concomitant]
  14. VIT B COMPLEX [Concomitant]
  15. ABILIFY [Concomitant]
     Active Substance: ARIPIPRAZOLE
  16. XANAX [Concomitant]
     Active Substance: ALPRAZOLAM

REACTIONS (1)
  - Pruritus [None]

NARRATIVE: CASE EVENT DATE: 20161031
